FAERS Safety Report 8620956-0 (Version None)
Quarter: 2012Q3

REPORT INFORMATION
  Report Type: 
  Country: None (occurrence: None)
  Receive Date: 20120824
  Receipt Date: 20120815
  Transmission Date: 20120928
  Serious: Yes (Hospitalization)
  Sender: FDA-Public Use
  Company Number: ZA-ELI_LILLY_AND_COMPANY-ZA201208005079

PATIENT
  Age: 45 Year
  Sex: Female

DRUGS (3)
  1. HUMALOG [Suspect]
     Indication: DIABETES MELLITUS
     Dosage: 10 U, TID
     Route: 058
     Dates: start: 20120321
  2. HUMULIN N [Suspect]
     Indication: DIABETES MELLITUS
     Dosage: 18 U, EACH EVENING
     Route: 058
     Dates: start: 20120321
  3. GLUCOPHAGE [Concomitant]
     Indication: DIABETES MELLITUS
     Dosage: 2000 MG, EACH EVENING
     Route: 048
     Dates: start: 20100101

REACTIONS (1)
  - UTERINE MASS [None]
